FAERS Safety Report 4833690-X (Version None)
Quarter: 2005Q4

REPORT INFORMATION
  Report Type: 
  Country: None (occurrence: None)
  Receive Date: 20051114
  Receipt Date: 20051103
  Transmission Date: 20060501
  Serious: Yes (Hospitalization, Other)
  Sender: FDA-Public Use
  Company Number: USA040979186

PATIENT
  Age: 78 Year
  Sex: Male
  Weight: 90 kg

DRUGS (3)
  1. HUMALOG [Suspect]
     Indication: DIABETES MELLITUS
     Dates: start: 20050101
  2. HUMALOG MIX 75/25 [Suspect]
     Indication: DIABETES MELLITUS
     Dates: start: 20050101
  3. HUMULIN N [Suspect]
     Dosage: 15 U

REACTIONS (7)
  - CATARACT OPERATION [None]
  - DIABETES MELLITUS INADEQUATE CONTROL [None]
  - HEART VALVE REPLACEMENT [None]
  - PHARMACEUTICAL PRODUCT COMPLAINT [None]
  - PNEUMONIA [None]
  - RETINAL HAEMORRHAGE [None]
  - VASCULAR BYPASS GRAFT [None]
